FAERS Safety Report 9921813 (Version 1)
Quarter: 2014Q1

REPORT INFORMATION
  Report Type: Spontaneous
  Country: MX (occurrence: MX)
  Receive Date: 20140225
  Receipt Date: 20140225
  Transmission Date: 20141002
  Serious: Yes (Other)
  Sender: FDA-Public Use
  Company Number: MX-SA-2014SA020081

PATIENT
  Age: 68 Year
  Sex: Female
  Weight: 64 kg

DRUGS (4)
  1. AVALIDE [Suspect]
     Indication: HYPERTENSION
     Dosage: (IRBESARTAN + HYDROCHLOROTIAZIDE) (300 MG + 12.5 MG, TABLET)
     Route: 048
     Dates: start: 2012
  2. GLUCOSAMINE [Concomitant]
     Indication: OSTEOPOROSIS
     Dates: start: 201306
  3. DEXAMETHASONE [Concomitant]
     Indication: BRONCHIECTASIS
     Route: 048
     Dates: start: 2006
  4. ASPIRINA [Concomitant]
     Dosage: STRENGTH: 500 MG
     Route: 048

REACTIONS (1)
  - Conjunctival haemorrhage [Not Recovered/Not Resolved]
